FAERS Safety Report 17598707 (Version 1)
Quarter: 2020Q1

REPORT INFORMATION
  Report Type: Spontaneous
  Country: US (occurrence: US)
  Receive Date: 20200327
  Receipt Date: 20200327
  Transmission Date: 20200409
  Serious: No
  Sender: FDA-Public Use
  Company Number: None

PATIENT
  Age: 69 Year
  Sex: Female

DRUGS (1)
  1. EVEROLIMUS 5MG PAR [Suspect]
     Active Substance: EVEROLIMUS
     Indication: NEOPLASM MALIGNANT
     Dosage: ?          OTHER DOSE:5MH;?
     Route: 048
     Dates: start: 20200304, end: 20200325

REACTIONS (6)
  - Fatigue [None]
  - Influenza like illness [None]
  - Decreased appetite [None]
  - Headache [None]
  - Rash [None]
  - Stomatitis [None]

NARRATIVE: CASE EVENT DATE: 202003
